FAERS Safety Report 13949583 (Version 2)
Quarter: 2017Q3

REPORT INFORMATION
  Report Type: Spontaneous
  Country: AU (occurrence: AU)
  Receive Date: 20170908
  Receipt Date: 20170918
  Transmission Date: 20171128
  Serious: Yes (Other)
  Sender: FDA-Public Use
  Company Number: PHHY2017AU127789

PATIENT
  Age: 34 Year
  Sex: Male

DRUGS (1)
  1. ELTROMBOPAG [Suspect]
     Active Substance: ELTROMBOPAG
     Indication: IMMUNE THROMBOCYTOPENIC PURPURA
     Dosage: 50 MG, QD
     Route: 065

REACTIONS (5)
  - Mitral valve disease [Unknown]
  - Mitral valve incompetence [Unknown]
  - Therapy non-responder [Unknown]
  - Penetrating abdominal trauma [Unknown]
  - Abdominal wall mass [Unknown]
